FAERS Safety Report 7938500-X (Version None)
Quarter: 2011Q4

REPORT INFORMATION
  Report Type: 
  Country: None (occurrence: None)
  Receive Date: 20111123
  Receipt Date: 20111019
  Transmission Date: 20120403
  Serious: Yes (Hospitalization)
  Sender: FDA-Public Use
  Company Number: US-ROCHE-1015583

PATIENT
  Sex: Female
  Weight: 63.2 kg

DRUGS (13)
  1. ZOFRAN [Concomitant]
  2. CARBOPLATIN [Suspect]
     Indication: ASTROCYTOMA
     Route: 042
     Dates: start: 20100121, end: 20110914
  3. VALIUM [Concomitant]
  4. PROMETRIUM [Concomitant]
  5. ESTRADIOL [Concomitant]
     Route: 062
  6. IRINOTECAN HYDROCHLORIDE [Suspect]
     Indication: ASTROCYTOMA
     Route: 042
     Dates: start: 20100120, end: 20110914
  7. PHENERGAN [Concomitant]
  8. AVASTIN [Suspect]
     Indication: ASTROCYTOMA
     Route: 042
     Dates: start: 20100120, end: 20110914
  9. LOMOTIL [Concomitant]
  10. VICODIN [Concomitant]
  11. TRILEPTAL [Concomitant]
  12. LAMICTAL [Concomitant]
  13. ATIVAN [Concomitant]

REACTIONS (4)
  - ASTHENIA [None]
  - CONVULSION [None]
  - ENCEPHALOPATHY [None]
  - HYPERTENSION [None]
